FAERS Safety Report 23381788 (Version 1)
Quarter: 2024Q1

REPORT INFORMATION
  Report Type: Spontaneous
  Country: US (occurrence: None)
  Receive Date: 20240108
  Receipt Date: 20240108
  Transmission Date: 20240409
  Serious: Yes (Disabling, Other)
  Sender: FDA-Public Use
  Company Number: None

PATIENT
  Age: 68 Year
  Sex: Female
  Weight: 51.75 kg

DRUGS (4)
  1. ALENDRONATE SODIUM [Suspect]
     Active Substance: ALENDRONATE SODIUM
     Indication: Osteoporosis
     Dosage: OTHER QUANTITY : 1 TABLET(S);?OTHER FREQUENCY : ONCE A WEEK;?
     Route: 048
     Dates: start: 20000101, end: 20231227
  2. VITAMINS [Concomitant]
     Active Substance: VITAMINS
  3. calcium with vit d [Concomitant]
  4. multi vitamin -daily [Concomitant]

REACTIONS (6)
  - Respiratory disorder [None]
  - Obstructive airways disorder [None]
  - Oesophageal obstruction [None]
  - Tooth fracture [None]
  - Tooth infection [None]
  - Tooth disorder [None]

NARRATIVE: CASE EVENT DATE: 20231215
